FAERS Safety Report 5648089-6 (Version None)
Quarter: 2008Q1

REPORT INFORMATION
  Report Type: 
  Country: None (occurrence: None)
  Receive Date: 20080229
  Receipt Date: 20080229
  Transmission Date: 20080703
  Serious: Yes (Other)
  Sender: FDA-Public Use
  Company Number: None

PATIENT
  Sex: Female
  Weight: 75.2971 kg

DRUGS (10)
  1. CHANTIX [Suspect]
     Indication: SMOKING CESSATION THERAPY
     Dosage: 0.5 MG DAILY (DAYS 1-3) PO; 0.5 MG BID (DAYS 4-7) PO
     Route: 048
     Dates: start: 20070911
  2. LEVOTHYROXINE SODIUM [Concomitant]
  3. ACIPHEX [Concomitant]
  4. POTASSIUM CHLORIDE [Concomitant]
  5. ASPIRIN [Concomitant]
  6. SERTRALINE [Concomitant]
  7. VYTORIN [Concomitant]
  8. METOPROLOL XR [Concomitant]
  9. BUPROPION HCL [Concomitant]
  10. LISINOPRIL [Concomitant]

REACTIONS (1)
  - TREMOR [None]
